FAERS Safety Report 4654917-3 (Version None)
Quarter: 2005Q2

REPORT INFORMATION
  Report Type: 
  Country: None (occurrence: None)
  Receive Date: 20050506
  Receipt Date: 20040831
  Transmission Date: 20051028
  Serious: No
  Sender: FDA-Public Use
  Company Number: 2004-03745

PATIENT
  Age: 85 Year
  Sex: Female
  Weight: 75 kg

DRUGS (8)
  1. AMOXICILLIN [Suspect]
     Indication: DENTAL DISORDER PROPHYLAXIS
     Route: 048
     Dates: start: 20040821, end: 20040821
  2. OXYBUTYNIN [Suspect]
     Indication: INCONTINENCE
     Dosage: 3.9MG TWO TIMES PER WEEK
     Route: 061
     Dates: start: 20040701
  3. AMITRIPTYLINE HCL TAB [Concomitant]
  4. ACTONEL [Concomitant]
  5. SYNTHROID [Concomitant]
  6. MULTI-VITAMIN [Concomitant]
  7. PRAVACHOL [Concomitant]
  8. MOBIC [Concomitant]

REACTIONS (2)
  - ERYTHEMA [None]
  - RASH PRURITIC [None]
